FAERS Safety Report 11030248 (Version 1)
Quarter: 2015Q2

REPORT INFORMATION
  Report Type: Spontaneous
  Country: US (occurrence: None)
  Receive Date: 20150414
  Receipt Date: 20150414
  Transmission Date: 20150821
  Serious: No
  Sender: FDA-Public Use
  Company Number: None

PATIENT
  Age: 19 Year
  Sex: Male

DRUGS (2)
  1. ERYTH-BENZ PEROX GEL [Concomitant]
  2. GLEEVEC [Suspect]
     Active Substance: IMATINIB MESYLATE
     Indication: CHRONIC MYELOID LEUKAEMIA
     Route: 048
     Dates: start: 201307

REACTIONS (1)
  - Drug dose omission [None]
